FAERS Safety Report 8340553-4 (Version None)
Quarter: 2012Q2

REPORT INFORMATION
  Report Type: 
  Country: None (occurrence: None)
  Receive Date: 20120507
  Receipt Date: 20090901
  Transmission Date: 20120825
  Serious: Yes (Hospitalization)
  Sender: FDA-Public Use
  Company Number: US-TEVA-2009010085

PATIENT
  Age: 80 Year
  Sex: Female

DRUGS (1)
  1. TREANDA [Suspect]
     Indication: CHRONIC LYMPHOCYTIC LEUKAEMIA
     Route: 042

REACTIONS (7)
  - PYREXIA [None]
  - ACARODERMATITIS [None]
  - DECREASED APPETITE [None]
  - SKIN DISORDER [None]
  - ASTHENIA [None]
  - CHROMATURIA [None]
  - URINE OUTPUT DECREASED [None]
